FAERS Safety Report 18727452 (Version 1)
Quarter: 2021Q1

REPORT INFORMATION
  Report Type: Other
  Country: FR (occurrence: FR)
  Receive Date: 20210112
  Receipt Date: 20210112
  Transmission Date: 20210419
  Serious: Yes (Other)
  Sender: FDA-Public Use
  Company Number: FR-ROCHE-2701190

PATIENT

DRUGS (1)
  1. OBINUTUZUMAB. [Suspect]
     Active Substance: OBINUTUZUMAB
     Indication: NEPHROTIC SYNDROME
     Dosage: 300 MG/1.73M2
     Route: 042

REACTIONS (3)
  - Hypogammaglobulinaemia [Unknown]
  - Neutropenia [Unknown]
  - Infusion related reaction [Unknown]
